FAERS Safety Report 8322043-8 (Version None)
Quarter: 2012Q2

REPORT INFORMATION
  Report Type: 
  Country: None (occurrence: None)
  Receive Date: 20120426
  Receipt Date: 20120419
  Transmission Date: 20120825
  Serious: Yes (Hospitalization)
  Sender: FDA-Public Use
  Company Number: 2012SP021385

PATIENT
  Age: 50 Year
  Sex: Male
  Weight: 82.4 kg

DRUGS (30)
  1. NORVASC [Concomitant]
  2. ALLOPURINOL [Concomitant]
  3. ACETAMINOPHEN [Concomitant]
  4. RIBAVIRIN [Suspect]
     Indication: HEPATITIS C
     Dosage: SEE IMAGE
     Route: 048
     Dates: start: 20120112, end: 20120118
  5. RIBAVIRIN [Suspect]
     Indication: HEPATITIS C
     Dosage: SEE IMAGE
     Route: 048
     Dates: start: 20120105, end: 20120111
  6. RIBAVIRIN [Suspect]
     Indication: HEPATITIS C
     Dosage: SEE IMAGE
     Route: 048
     Dates: start: 20120111, end: 20120117
  7. RIBAVIRIN [Suspect]
     Indication: HEPATITIS C
     Dosage: SEE IMAGE
     Route: 048
     Dates: start: 20120125, end: 20120131
  8. RIBAVIRIN [Suspect]
     Indication: HEPATITIS C
     Dosage: SEE IMAGE
     Route: 048
     Dates: start: 20120201, end: 20120207
  9. RIBAVIRIN [Suspect]
     Indication: HEPATITIS C
     Dosage: SEE IMAGE
     Route: 048
     Dates: start: 20120119, end: 20120125
  10. RIBAVIRIN [Suspect]
     Indication: HEPATITIS C
     Dosage: SEE IMAGE
     Route: 048
     Dates: start: 20120125, end: 20120131
  11. RIBAVIRIN [Suspect]
     Indication: HEPATITIS C
     Dosage: SEE IMAGE
     Route: 048
     Dates: start: 20120201, end: 20120208
  12. RIBAVIRIN [Suspect]
     Indication: HEPATITIS C
     Dosage: SEE IMAGE
     Route: 048
     Dates: start: 20120104, end: 20120104
  13. RIBAVIRIN [Suspect]
     Indication: HEPATITIS C
     Dosage: SEE IMAGE
     Route: 048
     Dates: start: 20120104, end: 20120110
  14. RIBAVIRIN [Suspect]
     Indication: HEPATITIS C
     Dosage: SEE IMAGE
     Route: 048
     Dates: start: 20120118, end: 20120124
  15. EPINASTINE HYDROCHLORIDE [Concomitant]
  16. PEGINTERFERON ALFA-2B [Suspect]
     Indication: HEPATITIS C
     Dosage: SEE IMAGE
     Route: 058
     Dates: start: 20120104, end: 20120104
  17. PEGINTERFERON ALFA-2B [Suspect]
     Indication: HEPATITIS C
     Dosage: SEE IMAGE
     Route: 058
     Dates: start: 20120222, end: 20120222
  18. PEGINTERFERON ALFA-2B [Suspect]
     Indication: HEPATITIS C
     Dosage: SEE IMAGE
     Route: 058
     Dates: start: 20120111, end: 20120111
  19. PEGINTERFERON ALFA-2B [Suspect]
     Indication: HEPATITIS C
     Dosage: SEE IMAGE
     Route: 058
     Dates: start: 20120229, end: 20120229
  20. PEGINTERFERON ALFA-2B [Suspect]
     Indication: HEPATITIS C
     Dosage: SEE IMAGE
     Route: 058
     Dates: start: 20120307, end: 20120307
  21. PEGINTERFERON ALFA-2B [Suspect]
     Indication: HEPATITIS C
     Dosage: SEE IMAGE
     Route: 058
     Dates: start: 20120201, end: 20120201
  22. PEGINTERFERON ALFA-2B [Suspect]
     Indication: HEPATITIS C
     Dosage: SEE IMAGE
     Route: 058
     Dates: start: 20120328, end: 20120328
  23. PEGINTERFERON ALFA-2B [Suspect]
     Indication: HEPATITIS C
     Dosage: SEE IMAGE
     Route: 058
     Dates: start: 20120118, end: 20120118
  24. PEGINTERFERON ALFA-2B [Suspect]
     Indication: HEPATITIS C
     Dosage: SEE IMAGE
     Route: 058
     Dates: start: 20120125, end: 20120125
  25. PEGINTERFERON ALFA-2B [Suspect]
     Indication: HEPATITIS C
     Dosage: SEE IMAGE
     Route: 058
     Dates: start: 20120314, end: 20120314
  26. PEGINTERFERON ALFA-2B [Suspect]
     Indication: HEPATITIS C
     Dosage: SEE IMAGE
     Route: 058
     Dates: start: 20120215, end: 20120215
  27. PEGINTERFERON ALFA-2B [Suspect]
     Indication: HEPATITIS C
     Dosage: SEE IMAGE
     Route: 058
     Dates: start: 20120321, end: 20120321
  28. PEGINTERFERON ALFA-2B [Suspect]
     Indication: HEPATITIS C
     Dosage: SEE IMAGE
     Route: 058
     Dates: start: 20120208, end: 20120208
  29. TERRA-CORTRIL [Concomitant]
  30. PRAVASTATIN SODIUM [Concomitant]

REACTIONS (1)
  - APPENDICITIS [None]
